FAERS Safety Report 13075803 (Version 1)
Quarter: 2016Q4

REPORT INFORMATION
  Report Type: Spontaneous
  Country: US (occurrence: US)
  Receive Date: 20161229
  Receipt Date: 20161229
  Transmission Date: 20170207
  Serious: No
  Sender: FDA-Public Use
  Company Number: None

PATIENT
  Age: 72 Year
  Sex: Male
  Weight: 67.95 kg

DRUGS (4)
  1. CITALOPRAM HBR TABS 20 MG CIPLA [Suspect]
     Active Substance: CITALOPRAM HYDROBROMIDE
     Indication: DEPRESSION
     Route: 048
     Dates: start: 20150508
  2. MUCINEX FAST-MAX [Concomitant]
  3. ASPIRIN. [Concomitant]
     Active Substance: ASPIRIN
  4. SIMVASTATIN. [Concomitant]
     Active Substance: SIMVASTATIN

REACTIONS (4)
  - Respiratory tract infection [None]
  - Cough [None]
  - Pain [None]
  - Productive cough [None]

NARRATIVE: CASE EVENT DATE: 20161203
